FAERS Safety Report 11414738 (Version 5)
Quarter: 2015Q4

REPORT INFORMATION
  Report Type: Report from Study
  Country: ZA (occurrence: ZA)
  Receive Date: 20150825
  Receipt Date: 20151228
  Transmission Date: 20160304
  Serious: Yes (Death, Life-Threatening, Hospitalization, Other)
  Sender: FDA-Public Use
  Company Number: ZA-ABBVIE-15K-143-1448252-00

PATIENT
  Age: 65 Year
  Sex: Male
  Weight: 85 kg

DRUGS (1)
  1. HUMIRA [Suspect]
     Active Substance: ADALIMUMAB
     Indication: RHEUMATOID ARTHRITIS
     Route: 058
     Dates: start: 20150627, end: 20151006

REACTIONS (8)
  - Malaise [Fatal]
  - Drug effect incomplete [Fatal]
  - Bedridden [Fatal]
  - Emotional disorder [Unknown]
  - Asthenia [Fatal]
  - Pulmonary embolism [Fatal]
  - Joint dislocation [Fatal]
  - Decubitus ulcer [Fatal]

NARRATIVE: CASE EVENT DATE: 201508
